FAERS Safety Report 4987251-2 (Version None)
Quarter: 2006Q2

REPORT INFORMATION
  Report Type: 
  Country: None (occurrence: None)
  Receive Date: 20060501
  Receipt Date: 20060302
  Transmission Date: 20061013
  Serious: Yes (Other)
  Sender: FDA-Public Use
  Company Number: US-MERCK-0603USA00521

PATIENT
  Age: 86 Year
  Sex: Female
  Weight: 59 kg

DRUGS (1)
  1. VIOXX [Suspect]
     Indication: PAIN
     Route: 048
     Dates: start: 20010101

REACTIONS (1)
  - CEREBROVASCULAR ACCIDENT [None]
